FAERS Safety Report 5449614-0 (Version None)
Quarter: 2007Q3

REPORT INFORMATION
  Report Type: 
  Country: None (occurrence: None)
  Receive Date: 20070912
  Receipt Date: 20070904
  Transmission Date: 20080115
  Serious: Yes (Hospitalization)
  Sender: FDA-Public Use
  Company Number: PHEH2007US06943

PATIENT
  Age: 75 Year
  Sex: Female

DRUGS (11)
  1. ZELNORM [Suspect]
     Indication: IRRITABLE BOWEL SYNDROME
     Dosage: 6 MG, BID
     Route: 048
     Dates: end: 20061201
  2. ULTRAM [Concomitant]
  3. ALTACE [Concomitant]
  4. MAGNESIUM OXIDE [Concomitant]
  5. NEURONTIN [Concomitant]
  6. SYNTHROID [Concomitant]
  7. AMBIEN [Concomitant]
  8. SEROQUEL [Concomitant]
  9. TOPROL-XL [Concomitant]
  10. NEXIUM [Concomitant]
  11. CYMBALTA [Concomitant]

REACTIONS (3)
  - GASTROINTESTINAL INFECTION [None]
  - GASTROINTESTINAL INFLAMMATION [None]
  - INTESTINAL OPERATION [None]
